FAERS Safety Report 12682991 (Version 1)
Quarter: 2016Q3

REPORT INFORMATION
  Report Type: Spontaneous
  Country: US (occurrence: None)
  Receive Date: 20160824
  Receipt Date: 20160824
  Transmission Date: 20161109
  Serious: Yes (Other)
  Sender: FDA-Public Use
  Company Number: None

PATIENT
  Age: 85 Year
  Sex: Female
  Weight: 54.43 kg

DRUGS (1)
  1. MIRTAZAPAINE, 8 MG [Suspect]
     Active Substance: MIRTAZAPINE
     Indication: DEPRESSION
     Route: 048
     Dates: start: 20160602, end: 20160610

REACTIONS (6)
  - Nausea [None]
  - Product quality issue [None]
  - Diarrhoea [None]
  - Economic problem [None]
  - Dehydration [None]
  - Malaise [None]

NARRATIVE: CASE EVENT DATE: 20160602
